FAERS Safety Report 5565164-5 (Version None)
Quarter: 2007Q4

REPORT INFORMATION
  Report Type: 
  Country: None (occurrence: None)
  Receive Date: 20071213
  Receipt Date: 20071213
  Transmission Date: 20080405
  Serious: Yes (Other)
  Sender: FDA-Public Use
  Company Number: None

PATIENT
  Age: 42 Year
  Sex: Female
  Weight: 58.9676 kg

DRUGS (5)
  1. CYMBALTA [Suspect]
     Indication: ANXIETY
     Dosage: 1 CAPSULE QD PO
     Route: 048
     Dates: start: 20051130, end: 20071212
  2. CYMBALTA [Suspect]
     Indication: DEPRESSION
     Dosage: 1 CAPSULE QD PO
     Route: 048
     Dates: start: 20051130, end: 20071212
  3. MULTI-VITAMIN [Concomitant]
  4. ALLEGRA [Concomitant]
  5. LUNESTA [Concomitant]

REACTIONS (4)
  - ABDOMINAL PAIN UPPER [None]
  - HEPATIC CYST [None]
  - LABORATORY TEST ABNORMAL [None]
  - LIVER DISORDER [None]
